FAERS Safety Report 9807611 (Version 1)
Quarter: 2014Q1

REPORT INFORMATION
  Report Type: Spontaneous
  Country: US (occurrence: US)
  Receive Date: 20140110
  Receipt Date: 20140110
  Transmission Date: 20141002
  Serious: No
  Sender: FDA-Public Use
  Company Number: US-SANOFI-AVENTIS-2013SA060125

PATIENT
  Age: 70 Year
  Sex: Male

DRUGS (3)
  1. PLAVIX [Suspect]
     Indication: PAIN IN EXTREMITY
     Route: 048
  2. CRESTOR [Concomitant]
  3. METOPROLOL [Concomitant]

REACTIONS (5)
  - Erythema [Recovered/Resolved]
  - Purulent discharge [Recovered/Resolved]
  - Muscle spasms [Unknown]
  - Drug dose omission [Unknown]
  - Pruritus [Unknown]
